FAERS Safety Report 9125079 (Version 1)
Quarter: 2013Q1

REPORT INFORMATION
  Report Type: Spontaneous
  Country: GB (occurrence: GB)
  Receive Date: 20130227
  Receipt Date: 20130227
  Transmission Date: 20140127
  Serious: Yes (Disabling)
  Sender: FDA-Public Use
  Company Number: GB-JNJFOC-20130211619

PATIENT
  Age: 74 Year
  Sex: Male
  Weight: 88.89 kg

DRUGS (6)
  1. XARELTO [Suspect]
     Indication: THROMBOSIS PROPHYLAXIS
     Route: 048
  2. ACETYLSALICYLIC ACID [Concomitant]
     Route: 065
     Dates: start: 20120924
  3. LACIDIPINE [Concomitant]
     Route: 065
     Dates: start: 20120924
  4. LOSEC [Concomitant]
     Route: 065
     Dates: start: 20120924
  5. ROSUVASTATIN [Concomitant]
     Route: 065
     Dates: start: 2012
  6. BENDROFLUMETHIAZIDE [Concomitant]
     Route: 065
     Dates: start: 20120924

REACTIONS (1)
  - Abdominal discomfort [Recovered/Resolved]
